FAERS Safety Report 20458974 (Version 2)
Quarter: 2022Q2

REPORT INFORMATION
  Report Type: Spontaneous
  Country: US (occurrence: US)
  Receive Date: 20220211
  Receipt Date: 20220413
  Transmission Date: 20220720
  Serious: No
  Sender: FDA-Public Use
  Company Number: US-GSKCCFUS-Case-01290902_AE-75263

PATIENT
  Sex: Male

DRUGS (2)
  1. NUCALA [Suspect]
     Active Substance: MEPOLIZUMAB
     Indication: Product used for unknown indication
     Dosage: UNK
     Dates: start: 2021
  2. NUCALA [Suspect]
     Active Substance: MEPOLIZUMAB
     Indication: Asthma
     Dosage: 200 MG/ML

REACTIONS (3)
  - Cough [Unknown]
  - Dyspnoea [Unknown]
  - Product dose omission issue [Unknown]

NARRATIVE: CASE EVENT DATE: 20220101
